FAERS Safety Report 5271454-6 (Version None)
Quarter: 2007Q1

REPORT INFORMATION
  Report Type: 
  Country: None (occurrence: None)
  Receive Date: 20070321
  Receipt Date: 20070314
  Transmission Date: 20070707
  Serious: Yes (Hospitalization)
  Sender: FDA-Public Use
  Company Number: TH-SHR-TH-2007-009009

PATIENT
  Age: 63 Year

DRUGS (1)
  1. ULTRAVIST 370 [Suspect]
     Dosage: 10 ML, 1 DOSE
     Route: 022
     Dates: start: 20070122, end: 20070122

REACTIONS (3)
  - ARRHYTHMIA [None]
  - BLOOD PRESSURE DECREASED [None]
  - OXYGEN SATURATION DECREASED [None]
